FAERS Safety Report 25107102 (Version 1)
Quarter: 2025Q1

REPORT INFORMATION
  Report Type: Spontaneous
  Country: CN (occurrence: CN)
  Receive Date: 20250321
  Receipt Date: 20250321
  Transmission Date: 20250408
  Serious: Yes (Other)
  Sender: TAKEDA
  Company Number: CN-TAKEDA-2025TUS028396

PATIENT
  Age: 72 Year
  Sex: Female
  Weight: 64 kg

DRUGS (2)
  1. ALOGLIPTIN [Suspect]
     Active Substance: ALOGLIPTIN
     Indication: Blood glucose increased
     Dosage: 1 DOSAGE FORM, QD
     Dates: start: 20250221, end: 20250305
  2. METFORMIN HYDROCHLORIDE\PIOGLITAZONE HYDROCHLORIDE [Suspect]
     Active Substance: METFORMIN HYDROCHLORIDE\PIOGLITAZONE HYDROCHLORIDE
     Indication: Blood glucose increased
     Dosage: 1 DOSAGE FORM, BID
     Dates: start: 20250221, end: 20250305

REACTIONS (1)
  - Rash [Recovered/Resolved]

NARRATIVE: CASE EVENT DATE: 20250306
